FAERS Safety Report 16467475 (Version 3)
Quarter: 2019Q3

REPORT INFORMATION
  Report Type: Spontaneous
  Country: US (occurrence: US)
  Receive Date: 20190624
  Receipt Date: 20190708
  Transmission Date: 20191004
  Serious: No
  Sender: FDA-Public Use
  Company Number: US-GLAXOSMITHKLINE-US2019108716

PATIENT
  Age: 73 Year
  Sex: Female

DRUGS (2)
  1. ABREVA [Suspect]
     Active Substance: DOCOSANOL
     Dosage: I USED IT 3 TIMES YESTERDAY
     Dates: start: 20190613
  2. ABREVA [Suspect]
     Active Substance: DOCOSANOL
     Indication: ORAL HERPES
     Dosage: I USED IT 3 TIMES YESTERDAY
     Route: 061
     Dates: start: 20190613, end: 20190613

REACTIONS (9)
  - Wrong technique in product usage process [Unknown]
  - Incorrect dose administered [Unknown]
  - Oropharyngeal discomfort [Recovering/Resolving]
  - Oral discomfort [Unknown]
  - Inappropriate schedule of product administration [Unknown]
  - Product quality issue [Unknown]
  - Oral herpes [Recovering/Resolving]
  - Lymphadenopathy [Not Recovered/Not Resolved]
  - Pain [Recovering/Resolving]

NARRATIVE: CASE EVENT DATE: 20190613
